FAERS Safety Report 10638677 (Version 1)
Quarter: 2014Q4

REPORT INFORMATION
  Report Type: Spontaneous
  Country: US (occurrence: None)
  Receive Date: 20141121
  Receipt Date: 20141121
  Transmission Date: 20150529
  Serious: No
  Sender: FDA-Public Use
  Company Number: 163-10004-14075219

PATIENT
  Age: 75 Year
  Sex: Female

DRUGS (6)
  1. TORSEMIDE (TORASEMIDE) [Concomitant]
  2. ZOLPIDEM (ZOLPIDEM) [Concomitant]
     Active Substance: ZOLPIDEM TARTRATE
  3. METOPROLOL (METOPROLOL) [Concomitant]
     Active Substance: METOPROLOL
  4. OTEZLA [Suspect]
     Active Substance: APREMILAST
     Indication: PSORIATIC ARTHROPATHY
     Dosage: 60 MG, 2 IN 1 D, PO
     Route: 048
     Dates: start: 20140709
  5. LISINOPRIL (LISINOPRIL) [Concomitant]
     Active Substance: LISINOPRIL
  6. HYDROXYCHLOROQUINE (HYDROXYCHLOROQUINE) [Concomitant]

REACTIONS (1)
  - Dizziness [None]

NARRATIVE: CASE EVENT DATE: 20140710
